FAERS Safety Report 4703777-0 (Version None)
Quarter: 2005Q2

REPORT INFORMATION
  Report Type: 
  Country: None (occurrence: None)
  Receive Date: 20050630
  Receipt Date: 20050621
  Transmission Date: 20051028
  Serious: Yes (Hospitalization)
  Sender: FDA-Public Use
  Company Number: PHBS2005ES08930

PATIENT
  Age: 83 Year
  Sex: Female

DRUGS (6)
  1. VOLTAREN [Suspect]
     Indication: OSTEOARTHRITIS
     Dosage: 100 MG, BID
     Route: 048
     Dates: start: 20050323, end: 20050329
  2. NOLOTIL [Suspect]
     Indication: OSTEOARTHRITIS
     Route: 048
     Dates: start: 20050324, end: 20050329
  3. TAVANIC [Concomitant]
     Dosage: 500 MG/DAY
     Route: 048
     Dates: start: 20050323, end: 20050329
  4. CLEXANE [Concomitant]
     Dosage: 140 MG, BID
     Route: 058
     Dates: start: 20050321, end: 20050331
  5. OMEPRAZOLE [Concomitant]
     Dosage: 20 MG/DAY
     Route: 048
     Dates: start: 20050329, end: 20050412
  6. ORFIDAL [Concomitant]
     Indication: INSOMNIA
     Dosage: 1 MG/DAY
     Route: 048

REACTIONS (3)
  - BLOOD CREATININE INCREASED [None]
  - DRUG INTERACTION [None]
  - NEPHRITIS INTERSTITIAL [None]
